FAERS Safety Report 19486600 (Version 1)
Quarter: 2021Q3

REPORT INFORMATION
  Report Type: Spontaneous
  Country: US (occurrence: US)
  Receive Date: 20210702
  Receipt Date: 20210702
  Transmission Date: 20211014
  Serious: No
  Sender: FDA-Public Use
  Company Number: US-UPSHER-SMITH LABORATORIES, LLC-2021USL00395

PATIENT
  Sex: Male
  Weight: 77.1 kg

DRUGS (6)
  1. TESTOSTERONE. [Suspect]
     Active Substance: TESTOSTERONE
     Indication: BLOOD TESTOSTERONE DECREASED
     Dosage: 100 MG
     Route: 061
     Dates: start: 2020
  2. MYRBETRIQ [Concomitant]
     Active Substance: MIRABEGRON
  3. ALFUZOSIN [Concomitant]
     Active Substance: ALFUZOSIN
  4. TESTOSTERONE. [Suspect]
     Active Substance: TESTOSTERONE
     Dosage: 50 MG
     Route: 061
     Dates: end: 2020
  5. CIALIS [Concomitant]
     Active Substance: TADALAFIL
  6. EDARBI [Concomitant]
     Active Substance: AZILSARTAN KAMEDOXOMIL

REACTIONS (1)
  - Drug ineffective [Recovered/Resolved]
